FAERS Safety Report 21931908 (Version 1)
Quarter: 2023Q1

REPORT INFORMATION
  Report Type: Report from Study
  Country: BR (occurrence: BR)
  Receive Date: 20230131
  Receipt Date: 20230131
  Transmission Date: 20230417
  Serious: Yes (Other)
  Sender: FDA-Public Use
  Company Number: BR-BAYER-2023A007981

PATIENT
  Age: 49 Year
  Sex: Female

DRUGS (13)
  1. BETAFERON [Suspect]
     Active Substance: INTERFERON BETA-1B
     Indication: Multiple sclerosis
     Dosage: 1 ML, QOD
     Route: 058
     Dates: start: 20230117
  2. LOSARTAN [Concomitant]
     Active Substance: LOSARTAN
     Indication: Hypertension
     Dosage: 50 MG
     Dates: start: 2015
  3. PRIDECIL [Concomitant]
     Indication: Fibromyalgia
     Dosage: 1 DF, QD
     Dates: start: 2011
  4. DIACEREIN [Concomitant]
     Active Substance: DIACEREIN
     Indication: Osteoarthritis
     Dosage: 1 DF, QD
     Dates: start: 2011
  5. DAPAGLIFLOZIN [Concomitant]
     Active Substance: DAPAGLIFLOZIN
     Indication: Diabetes mellitus
     Dosage: 10 MG
     Dates: start: 2021
  6. DIAMOX SEQUELS [Concomitant]
     Active Substance: ACETAZOLAMIDE
     Indication: Intracranial pressure increased
     Dosage: 2 DF, QD
     Dates: start: 202210
  7. TOPIRAMATE [Concomitant]
     Active Substance: TOPIRAMATE
     Indication: Migraine
     Dosage: 1 DF, QD
     Dates: start: 202202
  8. CITONEURIN [CYANOCOBALAMIN;PYRIDOXINE HYDROCHLORIDE;THIAMINE HYDRO [Concomitant]
     Indication: Vitamin supplementation
     Dosage: 1 DF, QD
     Dates: start: 202212
  9. BRIMONIDINE TARTRATE [Concomitant]
     Active Substance: BRIMONIDINE TARTRATE
     Indication: Glaucoma
     Dosage: UNK, BID
     Dates: start: 202212
  10. HYLO GEL [Concomitant]
     Indication: Eye lubrication therapy
     Dosage: UNK, QID
     Dates: start: 202209
  11. DEWS [Concomitant]
     Indication: Eye lubrication therapy
     Dosage: UNK
     Dates: start: 202201
  12. PREDNISOLONE [Concomitant]
     Active Substance: PREDNISOLONE
     Indication: Rhinitis
     Dosage: 3 DF, QD
     Dates: start: 20230115
  13. CARBOMER [Concomitant]
     Active Substance: CARBOMER

REACTIONS (15)
  - Mobility decreased [Recovered/Resolved]
  - Dizziness [Recovered/Resolved]
  - Dry mouth [Recovered/Resolved]
  - Vision blurred [Recovered/Resolved]
  - Headache [Recovered/Resolved]
  - Blood pressure decreased [Recovered/Resolved]
  - Chest pain [Recovered/Resolved]
  - Pain [Recovered/Resolved]
  - Erythema [Recovered/Resolved]
  - Injection site pruritus [Recovered/Resolved]
  - Dyspnoea [Not Recovered/Not Resolved]
  - Breast pain [Not Recovered/Not Resolved]
  - Fear [Recovered/Resolved]
  - Pyrexia [None]
  - Malaise [None]

NARRATIVE: CASE EVENT DATE: 20230118
